FAERS Safety Report 10111046 (Version 1)
Quarter: 2014Q2

REPORT INFORMATION
  Report Type: Spontaneous
  Country: US (occurrence: None)
  Receive Date: 20140424
  Receipt Date: 20140424
  Transmission Date: 20141212
  Serious: Yes (Disabling)
  Sender: FDA-Public Use
  Company Number: None

PATIENT
  Age: 54 Year
  Sex: Female
  Weight: 69.85 kg

DRUGS (1)
  1. TOBRAMYCIN AND DEXAMETHASONE [Suspect]
     Indication: EYE INFECTION
     Dosage: 3-4 TIMES A DAYONE DROP INEACH EYE.
     Route: 047
     Dates: start: 20140304, end: 20140308

REACTIONS (2)
  - Balance disorder [None]
  - Tinnitus [None]
